FAERS Safety Report 4925214-3 (Version None)
Quarter: 2006Q1

REPORT INFORMATION
  Report Type: 
  Country: None (occurrence: None)
  Receive Date: 20060228
  Receipt Date: 20060131
  Transmission Date: 20060701
  Serious: No
  Sender: FDA-Public Use
  Company Number: US-GLAXOSMITHKLINE-A0591743A

PATIENT
  Age: 77 Year
  Sex: Male

DRUGS (9)
  1. AVODART [Suspect]
     Indication: BENIGN PROSTATIC HYPERPLASIA
     Dosage: 1TAB PER DAY
     Route: 048
     Dates: start: 20060106
  2. LISINOPRIL [Concomitant]
  3. TYLENOL W/ CODEINE NO. 3 [Concomitant]
  4. INSULIN [Concomitant]
  5. HUMALOG [Concomitant]
  6. LANTUS [Concomitant]
  7. BECONASE [Concomitant]
  8. ASPIRIN [Concomitant]
  9. NORVASC [Concomitant]

REACTIONS (1)
  - ASTHENIA [None]
